FAERS Safety Report 9562956 (Version 1)
Quarter: 2013Q3

REPORT INFORMATION
  Report Type: Spontaneous
  Country: IN (occurrence: IN)
  Receive Date: 20130927
  Receipt Date: 20130927
  Transmission Date: 20140515
  Serious: Yes (Other)
  Sender: FDA-Public Use
  Company Number: IN-MYLANLABS-2013S1020992

PATIENT
  Age: 22 Year
  Sex: Female

DRUGS (9)
  1. NITROGLYCERIN [Suspect]
     Indication: EVACUATION OF RETAINED PRODUCTS OF CONCEPTION
     Dosage: 50 MCG
     Route: 065
  2. NITROGLYCERIN [Suspect]
     Indication: EVACUATION OF RETAINED PRODUCTS OF CONCEPTION
     Dosage: 100 MCG
     Route: 065
  3. ALPRAZOLAM [Concomitant]
     Indication: PREMEDICATION
     Dosage: 0.25MG
     Route: 065
  4. RANITIDINE [Concomitant]
     Indication: PREMEDICATION
     Dosage: 150MG
     Route: 065
  5. FENTANYL [Concomitant]
     Indication: INDUCTION OF ANAESTHESIA
     Route: 065
  6. PROPOFOL [Concomitant]
     Indication: INDUCTION OF ANAESTHESIA
     Route: 065
  7. ATRACURIUM BESILATE [Concomitant]
     Indication: INDUCTION OF ANAESTHESIA
     Route: 065
  8. ENTONOX [Concomitant]
     Indication: MAINTENANCE OF ANAESTHESIA
     Dosage: 60:40 RATIO
     Route: 065
  9. SEVOFLURANE [Concomitant]
     Indication: MAINTENANCE OF ANAESTHESIA
     Dosage: 1 MAC
     Route: 065

REACTIONS (3)
  - Hypoxia [Recovered/Resolved]
  - Tachycardia [Unknown]
  - Blood pressure decreased [Unknown]
